FAERS Safety Report 8442953-0 (Version None)
Quarter: 2012Q2

REPORT INFORMATION
  Report Type: 
  Country: None (occurrence: None)
  Receive Date: 20120615
  Receipt Date: 20120608
  Transmission Date: 20120825
  Serious: Yes (Hospitalization, Other)
  Sender: FDA-Public Use
  Company Number: US-PFIZER INC-2010034424

PATIENT
  Sex: Male

DRUGS (6)
  1. DILANTIN-125 [Suspect]
     Dosage: 150 MG, 3X/DAY
     Route: 048
     Dates: start: 19981225
  2. DILANTIN-125 [Suspect]
     Dosage: 250MG ORALLY THRICE DAILY AND EXTRA 400 MG
     Route: 048
     Dates: start: 19981230, end: 19981230
  3. DILANTIN-125 [Suspect]
     Indication: CONVULSION
     Dosage: 150 MG, 3X/DAY
     Route: 048
     Dates: start: 19981201
  4. DILANTIN-125 [Suspect]
     Dosage: 100 MG, UNK
     Route: 048
     Dates: start: 19981217
  5. DILANTIN-125 [Suspect]
     Dosage: 150MG THRICE DAILY AND EXTRA 400 MG
     Route: 048
     Dates: start: 19981225, end: 19981225
  6. DILANTIN-125 [Suspect]
     Dosage: 250 MG, 3X/DAY
     Route: 048
     Dates: start: 19981230

REACTIONS (1)
  - STEVENS-JOHNSON SYNDROME [None]
